FAERS Safety Report 18962643 (Version 1)
Quarter: 2021Q1

REPORT INFORMATION
  Report Type: Spontaneous
  Country: US (occurrence: US)
  Receive Date: 20210302
  Receipt Date: 20210302
  Transmission Date: 20210420
  Serious: Yes (Other)
  Sender: FDA-Public Use
  Company Number: None

PATIENT
  Age: 83 Year
  Sex: Female

DRUGS (2)
  1. AFINITOR [Concomitant]
     Active Substance: EVEROLIMUS
  2. EXEMESTANE 25MG TABLET [Suspect]
     Active Substance: EXEMESTANE
     Indication: BREAST CANCER
     Route: 048
     Dates: start: 20201105, end: 20210128

REACTIONS (2)
  - Therapy interrupted [None]
  - Rash [None]

NARRATIVE: CASE EVENT DATE: 20201224
